FAERS Safety Report 21616271 (Version 1)
Quarter: 2022Q4

REPORT INFORMATION
  Report Type: Report from Study
  Country: US (occurrence: US)
  Receive Date: 20221118
  Receipt Date: 20221118
  Transmission Date: 20230113
  Serious: No
  Sender: FDA-Public Use
  Company Number: US-ABBVIE-4185588

PATIENT
  Sex: Male

DRUGS (2)
  1. HUMIRA [Suspect]
     Active Substance: ADALIMUMAB
     Indication: Crohn^s disease
     Dosage: CF FORM STRENGTH: 40 MG
     Route: 058
     Dates: end: 20221014
  2. HUMIRA [Suspect]
     Active Substance: ADALIMUMAB
     Dosage: CF FORM STRENGTH: 40 MG
     Route: 058

REACTIONS (1)
  - Herpes zoster [Not Recovered/Not Resolved]
